FAERS Safety Report 23943923 (Version 1)
Quarter: 2024Q2

REPORT INFORMATION
  Report Type: Spontaneous
  Country: DE (occurrence: DE)
  Receive Date: 20240606
  Receipt Date: 20240606
  Transmission Date: 20240715
  Serious: Yes (Other)
  Sender: FDA-Public Use
  Company Number: None

PATIENT
  Sex: Female
  Weight: 68 kg

DRUGS (5)
  1. FULVESTRANT [Suspect]
     Active Substance: FULVESTRANT
     Indication: Breast cancer metastatic
     Dosage: 500 MG, Q4W (DAILY DOSE) (EVERY 4 WEEKS)
     Route: 030
     Dates: start: 20190418
  2. KISQALI [Suspect]
     Active Substance: RIBOCICLIB
     Indication: Breast cancer metastatic
     Dosage: 600 MG, QD (DAILY DOSE) (SCHEME 21 DAYS  INTAKE, 7 DAYS PAUSE)
     Route: 048
     Dates: start: 20190418, end: 20190516
  3. KISQALI [Suspect]
     Active Substance: RIBOCICLIB
     Dosage: 400 MG, QD (DAILY DOSE) (SCHEME 21 DAYS  INTAKE, 7 DAYS PAUSE)
     Route: 048
     Dates: start: 20190624, end: 20200202
  4. KISQALI [Suspect]
     Active Substance: RIBOCICLIB
     Dosage: 600 MG, QD (DAILY DOSE) (SCHEME 21 DAYS  INTAKE, 7 DAYS PAUSE)
     Route: 048
     Dates: start: 20190523, end: 20190623
  5. KISQALI [Suspect]
     Active Substance: RIBOCICLIB
     Dosage: 600 MG, QD (DAILY DOSE) (SCHEME 21 DAYS  INTAKE, 7 DAYS PAUSE)
     Dates: start: 20200203

REACTIONS (12)
  - Neutropenia [Not Recovered/Not Resolved]
  - Rash [Recovered/Resolved]
  - Rash pruritic [Recovered/Resolved]
  - Stomatitis [Recovered/Resolved]
  - Candida infection [Recovered/Resolved]
  - Fatigue [Recovered/Resolved]
  - Skin toxicity [Recovered/Resolved]
  - Fatigue [Recovered/Resolved]
  - Arthropathy [Recovered/Resolved]
  - Vertigo [Recovered/Resolved]
  - Hypertension [Recovering/Resolving]
  - Depressed mood [Unknown]

NARRATIVE: CASE EVENT DATE: 20190516
